FAERS Safety Report 7730766-4 (Version None)
Quarter: 2011Q3

REPORT INFORMATION
  Report Type: 
  Country: None (occurrence: None)
  Receive Date: 20110906
  Receipt Date: 20110830
  Transmission Date: 20111222
  Serious: Yes (Hospitalization)
  Sender: FDA-Public Use
  Company Number: FR-GLAXOSMITHKLINE-B0744708A

PATIENT
  Sex: Female

DRUGS (2)
  1. LANSOPRAZOLE [Concomitant]
     Route: 048
     Dates: start: 20110101, end: 20110101
  2. NABUMETONE [Suspect]
     Indication: PRODUCT USED FOR UNKNOWN INDICATION
     Route: 048
     Dates: start: 20110101, end: 20110101

REACTIONS (2)
  - ANGIOEDEMA [None]
  - DYSPHAGIA [None]
